FAERS Safety Report 7804215-1 (Version None)
Quarter: 2011Q4

REPORT INFORMATION
  Report Type: 
  Country: None (occurrence: None)
  Receive Date: 20111010
  Receipt Date: 20110928
  Transmission Date: 20120403
  Serious: Yes (Hospitalization)
  Sender: FDA-Public Use
  Company Number: DK-SANOFI-AVENTIS-2011SA044446

PATIENT
  Sex: Female
  Weight: 85 kg

DRUGS (15)
  1. FUROSEMIDE [Concomitant]
     Route: 065
  2. PANTOPRAZOLE [Concomitant]
  3. WARFARIN SODIUM [Concomitant]
     Route: 065
  4. SIMVASTATIN [Concomitant]
     Route: 065
  5. AMARYL [Concomitant]
     Route: 065
  6. AMITRIPTYLINE HYDROCHLORIDE [Concomitant]
  7. ENALAPRIL MALEATE [Concomitant]
     Route: 065
  8. METFORMIN HYDROCHLORIDE [Concomitant]
     Route: 065
  9. OXYCONTIN [Concomitant]
  10. DRONEDARONE HCL [Suspect]
     Indication: ATRIAL FIBRILLATION
     Route: 048
     Dates: start: 20101115
  11. LOSARTAN POTASSIUM [Concomitant]
  12. ACETAMINOPHEN [Concomitant]
     Dosage: 500 MG X 2 MAX X 4
  13. EZETIMIBE [Concomitant]
  14. VERALOC [Concomitant]
     Route: 065
     Dates: end: 20110615
  15. DIGOXIN [Concomitant]
     Dates: end: 20110611

REACTIONS (2)
  - SYNCOPE [None]
  - ELECTROLYTE IMBALANCE [None]
